FAERS Safety Report 6057164-6 (Version None)
Quarter: 2009Q1

REPORT INFORMATION
  Report Type: 
  Country: None (occurrence: None)
  Receive Date: 20090129
  Receipt Date: 20071231
  Transmission Date: 20090719
  Serious: No
  Sender: FDA-Public Use
  Company Number: A0701480A

PATIENT
  Sex: Male

DRUGS (1)
  1. WELLBUTRIN [Suspect]
     Indication: DEPRESSION
     Route: 065

REACTIONS (2)
  - OROPHARYNGEAL PAIN [None]
  - RASH [None]
